FAERS Safety Report 5712202-2 (Version None)
Quarter: 2008Q2

REPORT INFORMATION
  Report Type: 
  Country: None (occurrence: None)
  Receive Date: 20080422
  Receipt Date: 20080411
  Transmission Date: 20081010
  Serious: Yes (Hospitalization)
  Sender: FDA-Public Use
  Company Number: US-RANBAXY-2008RR-14438

PATIENT

DRUGS (4)
  1. CIPROFLOXACIN [Suspect]
     Indication: URINARY TRACT INFECTION
  2. CLOZAPINE [Suspect]
     Indication: SCHIZOAFFECTIVE DISORDER
  3. ZIPRASIDONE HCL [Concomitant]
     Indication: SCHIZOAFFECTIVE DISORDER
  4. OLANZAPINE [Concomitant]
     Indication: SCHIZOAFFECTIVE DISORDER

REACTIONS (4)
  - CONFUSIONAL STATE [None]
  - DRUG INTERACTION [None]
  - IRRITABILITY [None]
  - MYOCARDITIS [None]
